FAERS Safety Report 23540113 (Version 2)
Quarter: 2024Q1

REPORT INFORMATION
  Report Type: Report from Study
  Country: US (occurrence: US)
  Receive Date: 20240219
  Receipt Date: 20240228
  Transmission Date: 20240409
  Serious: No
  Sender: FDA-Public Use
  Company Number: US-BIOVITRUM-2024-US-002600

PATIENT
  Age: 65 Year
  Sex: Female

DRUGS (1)
  1. KINERET [Suspect]
     Active Substance: ANAKINRA
     Indication: Rheumatoid arthritis
     Dosage: 200 MG DAILY
     Route: 058
     Dates: start: 20221103

REACTIONS (3)
  - Infection [Unknown]
  - Drug ineffective [Unknown]
  - Product dose omission issue [Unknown]
